FAERS Safety Report 19912341 (Version 2)
Quarter: 2021Q4

REPORT INFORMATION
  Report Type: Other
  Country: DE (occurrence: DE)
  Receive Date: 20211004
  Receipt Date: 20211011
  Transmission Date: 20220303
  Serious: Yes (Death, Congenital Anomaly, Other)
  Sender: FDA-Public Use
  Company Number: DE-NUVO PHARMACEUTICALS INC-2119125

PATIENT
  Sex: Male

DRUGS (1)
  1. NAPROXEN [Suspect]
     Active Substance: NAPROXEN
     Indication: Foetal exposure during pregnancy
     Route: 064

REACTIONS (4)
  - Premature baby [Fatal]
  - Respiratory tract malformation [Fatal]
  - Macrocephaly [Fatal]
  - Foetal exposure during pregnancy [Fatal]
